FAERS Safety Report 5429224-1 (Version None)
Quarter: 2007Q3

REPORT INFORMATION
  Report Type: 
  Country: None (occurrence: None)
  Receive Date: 20070824
  Receipt Date: 20070808
  Transmission Date: 20080115
  Serious: Yes (Hospitalization, Other)
  Sender: FDA-Public Use
  Company Number: 2007JP003783

PATIENT
  Age: 55 Year
  Sex: Female

DRUGS (7)
  1. PROGRAF [Suspect]
     Indication: RENAL TRANSPLANT
  2. MYCOPHENOLATE MOFETIL [Concomitant]
  3. METHYLPREDNISOLONE [Concomitant]
  4. SIMULECT [Concomitant]
  5. GANCICLOVIR [Concomitant]
  6. STEROID [Concomitant]
  7. GUSPERIMUS HYDROCHLORIDE (GUSPERIMUS HYDROCHLORIDE) [Concomitant]

REACTIONS (4)
  - CHRONIC ALLOGRAFT NEPHROPATHY [None]
  - CYTOMEGALOVIRUS INFECTION [None]
  - GLOMERULONEPHRITIS [None]
  - TRANSPLANT REJECTION [None]
